FAERS Safety Report 4901984-5 (Version None)
Quarter: 2006Q1

REPORT INFORMATION
  Report Type: 
  Country: None (occurrence: None)
  Receive Date: 20060201
  Receipt Date: 20060201
  Transmission Date: 20060701
  Serious: Yes (Other)
  Sender: FDA-Public Use
  Company Number: None

PATIENT
  Age: 12 Year
  Sex: Female
  Weight: 50 kg

DRUGS (1)
  1. TAMIFLU [Suspect]
     Indication: INFLUENZA
     Dosage: 75 MG PO BID
     Route: 048
     Dates: start: 20051207, end: 20051210

REACTIONS (3)
  - OEDEMA PERIPHERAL [None]
  - RASH MACULAR [None]
  - RASH PRURITIC [None]
